FAERS Safety Report 15490466 (Version 4)
Quarter: 2019Q3

REPORT INFORMATION
  Report Type: Spontaneous
  Country: US (occurrence: US)
  Receive Date: 20181011
  Receipt Date: 20190813
  Transmission Date: 20191004
  Serious: Yes (Hospitalization)
  Sender: FDA-Public Use
  Company Number: US-ACTELION-A-NJ2018-178408

PATIENT
  Sex: Female
  Weight: 58.96 kg

DRUGS (2)
  1. OPSUMIT [Suspect]
     Active Substance: MACITENTAN
     Indication: PULMONARY ARTERIAL HYPERTENSION
     Dosage: 10 MG, QD
     Route: 048
     Dates: start: 20180802, end: 2019
  2. SILDENAFIL CITRATE. [Concomitant]
     Active Substance: SILDENAFIL CITRATE

REACTIONS (10)
  - Abdominal distension [Unknown]
  - Chest pain [Unknown]
  - Memory impairment [Unknown]
  - Anaemia [Unknown]
  - Hypotension [Not Recovered/Not Resolved]
  - Dizziness [Not Recovered/Not Resolved]
  - Pulmonary congestion [Unknown]
  - Weight decreased [Unknown]
  - Product dose omission [Unknown]
  - Abdominal pain upper [Unknown]
